FAERS Safety Report 5601800-2 (Version None)
Quarter: 2008Q1

REPORT INFORMATION
  Report Type: 
  Country: None (occurrence: None)
  Receive Date: 20080111
  Receipt Date: 20070618
  Transmission Date: 20080703
  Serious: Yes (Other)
  Sender: FDA-Public Use
  Company Number: HQWYE742229JUN04

PATIENT
  Age: 46 Year
  Sex: Female
  Weight: 116.68 kg

DRUGS (1)
  1. PREMPRO [Suspect]
     Indication: HORMONE REPLACEMENT THERAPY
     Dosage: ORAL
     Route: 048
     Dates: start: 19991101, end: 20030901

REACTIONS (1)
  - CEREBROVASCULAR ACCIDENT [None]
